FAERS Safety Report 13982298 (Version 4)
Quarter: 2020Q4

REPORT INFORMATION
  Report Type: Spontaneous
  Country: US (occurrence: US)
  Receive Date: 20170918
  Receipt Date: 20201001
  Transmission Date: 20210113
  Serious: No
  Sender: FDA-Public Use
  Company Number: US-BIOGEN-2017BI00456548

PATIENT
  Sex: Female

DRUGS (3)
  1. TYSABRI [Suspect]
     Active Substance: NATALIZUMAB
     Route: 065
     Dates: start: 20140224, end: 20151016
  2. TYSABRI [Suspect]
     Active Substance: NATALIZUMAB
     Route: 042
     Dates: start: 20160324
  3. TYSABRI [Suspect]
     Active Substance: NATALIZUMAB
     Indication: MULTIPLE SCLEROSIS
     Route: 065
     Dates: start: 20110630, end: 20130927

REACTIONS (10)
  - Back pain [Unknown]
  - Spinal stenosis [Not Recovered/Not Resolved]
  - Illness [Recovered/Resolved]
  - Gait disturbance [Unknown]
  - Alopecia [Unknown]
  - Stress [Unknown]
  - Nervousness [Unknown]
  - Ovarian cyst [Unknown]
  - Fear [Unknown]
  - Fall [Recovered/Resolved]
